FAERS Safety Report 16866834 (Version 1)
Quarter: 2019Q4

REPORT INFORMATION
  Report Type: Spontaneous
  Country: US (occurrence: US)
  Receive Date: 20190927
  Receipt Date: 20190927
  Transmission Date: 20200122
  Serious: Yes (Hospitalization)
  Sender: FDA-Public Use
  Company Number: None

PATIENT
  Age: 61 Year
  Sex: Female

DRUGS (8)
  1. AMITRIPTLIN [Concomitant]
  2. HYDROMORPHON [Concomitant]
     Active Substance: HYDROMORPHONE
  3. TOPIRAMATE. [Concomitant]
     Active Substance: TOPIRAMATE
  4. AFINITOR [Suspect]
     Active Substance: EVEROLIMUS
     Indication: NEOPLASM MALIGNANT
     Route: 048
     Dates: start: 20190820
  5. CARUSOPRODOL [Concomitant]
  6. MORPHINE [Concomitant]
     Active Substance: MORPHINE
  7. NORTRIPTYLIN [Concomitant]
     Active Substance: NORTRIPTYLINE
  8. POT CL MICRO 20 MEQ [Concomitant]
     Active Substance: POTASSIUM CHLORIDE

REACTIONS (2)
  - Therapy cessation [None]
  - Enteritis [None]

NARRATIVE: CASE EVENT DATE: 20190918
